FAERS Safety Report 4907792-3 (Version None)
Quarter: 2006Q1

REPORT INFORMATION
  Report Type: 
  Country: None (occurrence: None)
  Receive Date: 20060210
  Receipt Date: 20051201
  Transmission Date: 20060701
  Serious: Yes (Hospitalization)
  Sender: FDA-Public Use
  Company Number: JP-BRISTOL-MYERS SQUIBB COMPANY-13221213

PATIENT
  Age: 55 Year
  Sex: Female

DRUGS (10)
  1. PARAPLATIN [Suspect]
     Indication: PERITONEAL CARCINOMA
     Route: 041
     Dates: start: 20050919, end: 20051019
  2. GEMZAR [Suspect]
     Indication: PERITONEAL CARCINOMA
     Route: 041
     Dates: start: 20050919, end: 20050926
  3. RINDERON [Concomitant]
     Route: 042
     Dates: start: 20050926, end: 20051026
  4. SANDOSTATIN [Concomitant]
     Route: 042
     Dates: start: 20050927, end: 20051026
  5. NEO-MINOPHAGEN C [Concomitant]
     Route: 042
     Dates: start: 20051010, end: 20051111
  6. TIENAM [Concomitant]
     Route: 042
     Dates: start: 20051020, end: 20051027
  7. PRODIF [Concomitant]
     Route: 042
     Dates: start: 20051012, end: 20051027
  8. FOY [Concomitant]
     Route: 042
     Dates: start: 20051026, end: 20051106
  9. NEUART [Concomitant]
     Route: 042
     Dates: start: 20051026, end: 20051031
  10. ALBUMIN (HUMAN) [Concomitant]
     Route: 042
     Dates: start: 20051026, end: 20051117

REACTIONS (3)
  - DISSEMINATED INTRAVASCULAR COAGULATION [None]
  - FUNGAEMIA [None]
  - REVERSIBLE POSTERIOR LEUKOENCEPHALOPATHY SYNDROME [None]
